FAERS Safety Report 14156378 (Version 1)
Quarter: 2017Q4

REPORT INFORMATION
  Report Type: Spontaneous
  Country: US (occurrence: US)
  Receive Date: 20171103
  Receipt Date: 20171103
  Transmission Date: 20180321
  Serious: No
  Sender: FDA-Public Use
  Company Number: US-PFIZER INC-2017471860

PATIENT
  Age: 69 Year
  Sex: Female

DRUGS (2)
  1. EUCRISA [Suspect]
     Active Substance: CRISABOROLE
     Dosage: UNK UNK, 2X/DAY
     Route: 061
     Dates: start: 201710, end: 201710
  2. CETAPHIL [Concomitant]
     Active Substance: AVOBENZONE\OCTOCRYLENE\TRICLOSAN
     Dosage: UNK UNK, DAILY

REACTIONS (2)
  - Drug ineffective [Unknown]
  - Inflammation [Not Recovered/Not Resolved]
